FAERS Safety Report 12549888 (Version 3)
Quarter: 2016Q4

REPORT INFORMATION
  Report Type: Report from Study
  Country: US (occurrence: US)
  Receive Date: 20160712
  Receipt Date: 20161027
  Transmission Date: 20170207
  Serious: Yes (Hospitalization)
  Sender: FDA-Public Use
  Company Number: US-SAOL THERAPEUTICS-2016SAO00135

PATIENT
  Age: 27 Year
  Sex: Female

DRUGS (2)
  1. LIORESAL [Suspect]
     Active Substance: BACLOFEN
     Indication: MUSCLE SPASTICITY
     Dosage: 711.8 ?G, \DAY
     Route: 037
     Dates: start: 20160516, end: 20160627
  2. LIORESAL [Suspect]
     Active Substance: BACLOFEN
     Dosage: 611.7 ?G, \DAY
     Route: 037
     Dates: start: 20160627

REACTIONS (1)
  - Implant site infection [Recovered/Resolved]

NARRATIVE: CASE EVENT DATE: 20160627
